FAERS Safety Report 6129520-9 (Version None)
Quarter: 2009Q1

REPORT INFORMATION
  Report Type: 
  Country: None (occurrence: None)
  Receive Date: 20090324
  Receipt Date: 20090316
  Transmission Date: 20090719
  Serious: Yes (Hospitalization)
  Sender: FDA-Public Use
  Company Number: PHHY2009JP05809

PATIENT
  Sex: Male
  Weight: 63 kg

DRUGS (6)
  1. NEORAL [Suspect]
     Indication: PSORIASIS
     Dosage: 150 MG/DAY
     Route: 048
     Dates: start: 20070711, end: 20080820
  2. NEORAL [Suspect]
     Dosage: 200 MG/DAY
     Route: 048
     Dates: start: 20080821, end: 20081023
  3. ALLELOCK [Suspect]
     Indication: PAIN
     Dosage: 5 MG, BID
     Route: 048
     Dates: start: 20070412, end: 20081023
  4. ANTEBATE [Concomitant]
     Route: 061
  5. OXAROL [Concomitant]
     Route: 061
  6. DOVONEX [Concomitant]
     Route: 061

REACTIONS (1)
  - RHABDOMYOLYSIS [None]
